FAERS Safety Report 4316308-4 (Version None)
Quarter: 2004Q1

REPORT INFORMATION
  Report Type: 
  Country: None (occurrence: None)
  Receive Date: 20040312
  Receipt Date: 20040312
  Transmission Date: 20041129
  Serious: Yes (Hospitalization)
  Sender: FDA-Public Use
  Company Number: None

PATIENT
  Age: 50 Year
  Sex: Female
  Weight: 132 kg

DRUGS (8)
  1. ENBREL [Suspect]
     Indication: BEHCET'S SYNDROME
     Dosage: 25 MG SQ TWICE WEEKLY
     Route: 058
     Dates: start: 20040119, end: 20040223
  2. PLAQUENIL [Concomitant]
  3. PREDNISONE [Concomitant]
  4. MAXZIDE [Concomitant]
  5. METHADONE HCL [Concomitant]
  6. PRILOSEC [Concomitant]
  7. MIACALCIN [Concomitant]
  8. LABETALOL HCL [Concomitant]

REACTIONS (5)
  - BLOOD CREATININE INCREASED [None]
  - BLOOD UREA INCREASED [None]
  - CELLULITIS [None]
  - HYPERTENSION [None]
  - STREPTOCOCCAL SEPSIS [None]
